FAERS Safety Report 13700846 (Version 1)
Quarter: 2017Q2

REPORT INFORMATION
  Report Type: Spontaneous
  Country: US (occurrence: US)
  Receive Date: 20170628
  Receipt Date: 20170628
  Transmission Date: 20170830
  Serious: Yes (Hospitalization, Other)
  Sender: FDA-Public Use
  Company Number: None

PATIENT
  Age: 65 Year
  Sex: Male
  Weight: 86.18 kg

DRUGS (1)
  1. SELEGILINE [Suspect]
     Active Substance: SELEGILINE
     Indication: DEPRESSION
     Route: 061
     Dates: start: 20160307, end: 20170112

REACTIONS (8)
  - Blood pressure decreased [None]
  - Dizziness [None]
  - Vision blurred [None]
  - Hypophagia [None]
  - Hand fracture [None]
  - Fall [None]
  - Orthostatic hypotension [None]
  - Syncope [None]

NARRATIVE: CASE EVENT DATE: 20170111
